FAERS Safety Report 10501462 (Version 1)
Quarter: 2014Q4

REPORT INFORMATION
  Report Type: Spontaneous
  Country: US (occurrence: None)
  Receive Date: 20141006
  Receipt Date: 20141006
  Transmission Date: 20150528
  Serious: Yes (Hospitalization)
  Sender: FDA-Public Use
  Company Number: None

PATIENT
  Age: 67 Year
  Sex: Male
  Weight: 115.9 kg

DRUGS (2)
  1. ETODOLAC. [Suspect]
     Active Substance: ETODOLAC
     Indication: PAIN
     Route: 048
     Dates: start: 20040801, end: 20140806
  2. ETODOLAC. [Suspect]
     Active Substance: ETODOLAC
     Indication: INFLAMMATION
     Route: 048
     Dates: start: 20040801, end: 20140806

REACTIONS (4)
  - Drug abuse [None]
  - Acute kidney injury [None]
  - Dehydration [None]
  - Nephropathy toxic [None]

NARRATIVE: CASE EVENT DATE: 20140806
